FAERS Safety Report 7424637-0 (Version None)
Quarter: 2011Q2

REPORT INFORMATION
  Report Type: 
  Country: None (occurrence: None)
  Receive Date: 20110419
  Receipt Date: 20110412
  Transmission Date: 20111010
  Serious: Yes (Hospitalization)
  Sender: FDA-Public Use
  Company Number: US-PFIZER INC-2011081093

PATIENT
  Age: 71 Year
  Sex: Male

DRUGS (2)
  1. TORISEL [Suspect]
     Indication: RENAL CELL CARCINOMA
     Dosage: 25 MG,OVER 30 MINS DAY 1, 8, 15 AND 22
     Route: 042
     Dates: start: 20100515, end: 20110325
  2. BEVACIZUMAB [Suspect]
     Indication: RENAL CELL CARCINOMA
     Dosage: 10 MG/KG, OVER 30-90 MINS ON DAYS 1 AND 15
     Route: 042
     Dates: start: 20100515, end: 20110325

REACTIONS (4)
  - CARDIAC FAILURE CONGESTIVE [None]
  - RENAL FAILURE [None]
  - HYPERKALAEMIA [None]
  - LEFT VENTRICULAR DYSFUNCTION [None]
